FAERS Safety Report 21439005 (Version 1)
Quarter: 2022Q4

REPORT INFORMATION
  Report Type: Report from Study
  Country: US (occurrence: US)
  Receive Date: 20221011
  Receipt Date: 20221011
  Transmission Date: 20230112
  Serious: Yes (Other)
  Sender: FDA-Public Use
  Company Number: US-TAKEDA-2022TUS071112

PATIENT
  Age: 0 Year
  Sex: Female
  Weight: 3.67 kg

DRUGS (11)
  1. VEDOLIZUMAB [Suspect]
     Active Substance: VEDOLIZUMAB
     Indication: Colitis ulcerative
     Dosage: 300 MILLIGRAM
     Route: 042
     Dates: start: 20190719, end: 20201212
  2. BOOSTRIX [Concomitant]
     Active Substance: TETANUS TOXOID, REDUCED DIPHTHERIA TOXOID AND ACELLULAR PERTUSSIS VACCINE, ADSORBED ANTIGENS
     Dosage: UNK UNK, QD
     Route: 030
     Dates: start: 20200928, end: 20200928
  3. FLUBLOK QUADRIVALENT NOS [Concomitant]
     Active Substance: INFLUENZA VIRUS VACCINE
     Dosage: UNK UNK, QD
     Route: 030
     Dates: start: 20200928, end: 20200928
  4. GLUCOSE TOLERANCE [Concomitant]
     Dosage: UNK UNK, QD
     Dates: start: 20200912, end: 20200912
  5. GLUCOSE TOLERANCE [Concomitant]
     Dosage: UNK, QD
     Dates: start: 20200919, end: 20200919
  6. IRON [Concomitant]
     Active Substance: IRON
     Indication: Anaemia
     Dosage: 10 MILLILITER, QD
     Dates: start: 20201018, end: 20201019
  7. IRON [Concomitant]
     Active Substance: IRON
     Dosage: 10 MILLILITER, QD
     Dates: start: 20201021, end: 20201021
  8. MACROBID [Concomitant]
     Active Substance: NITROFURANTOIN\NITROFURANTOIN MONOHYDRATE
     Indication: Urinary tract infection
     Dosage: 100 MILLIGRAM, BID
     Route: 048
     Dates: start: 20200509, end: 20200513
  9. SIMPONI [Concomitant]
     Active Substance: GOLIMUMAB
     Indication: Colitis ulcerative
     Dosage: UNK
     Route: 050
     Dates: start: 20190708
  10. TUMS [Concomitant]
     Active Substance: CALCIUM CARBONATE
     Indication: Dyspepsia
     Dosage: UNK UNK, MONTHLY
     Route: 048
     Dates: start: 20200831, end: 20201212
  11. VITAMIN D3 [Concomitant]
     Active Substance: CHOLECALCIFEROL
     Indication: Vitamin D deficiency
     Dosage: 1000 INTERNATIONAL UNIT, QD
     Route: 048
     Dates: start: 20200317, end: 20201212

REACTIONS (2)
  - Developmental delay [Unknown]
  - Foetal exposure during pregnancy [Unknown]

NARRATIVE: CASE EVENT DATE: 20211118
